FAERS Safety Report 20771091 (Version 1)
Quarter: 2022Q2

REPORT INFORMATION
  Report Type: Spontaneous
  Country: US (occurrence: None)
  Receive Date: 20220429
  Receipt Date: 20220429
  Transmission Date: 20220721
  Serious: Yes (Hospitalization)
  Sender: FDA-Public Use
  Company Number: None

PATIENT
  Sex: Female

DRUGS (22)
  1. IMATINIB [Suspect]
     Active Substance: IMATINIB
     Indication: Chronic myeloid leukaemia
     Dosage: FREQUENCY : DAILY;?TAKE ONE TABLET BY MOUTH DAILY WITH FOOD AND A FULL GLASS OF WATER?
     Route: 048
  2. IMATINIB [Suspect]
     Active Substance: IMATINIB
     Indication: Philadelphia chromosome positive
  3. IMATINIB [Suspect]
     Active Substance: IMATINIB
     Indication: Philadelphia chromosome positive
  4. IMATINIB [Suspect]
     Active Substance: IMATINIB
     Indication: Philadelphia chromosome positive
  5. AMOXICILLIN [Concomitant]
     Active Substance: AMOXICILLIN
  6. ASPIRIN [Concomitant]
     Active Substance: ASPIRIN
  7. CLONAZEPAM [Concomitant]
     Active Substance: CLONAZEPAM
  8. COMBIGAN [Concomitant]
     Active Substance: BRIMONIDINE TARTRATE\TIMOLOL MALEATE
  9. FLONASE 0.05% [Concomitant]
  10. GABAPENTIN [Concomitant]
     Active Substance: GABAPENTIN
  11. GLEEVEC [Concomitant]
     Active Substance: IMATINIB MESYLATE
  12. LEVOCETIRIZI [Concomitant]
  13. MECLIZINE [Concomitant]
     Active Substance: MECLIZINE HYDROCHLORIDE
  14. MELOXICAM [Concomitant]
     Active Substance: MELOXICAM
  15. METORPOL SUC [Concomitant]
  16. OMEPRAZOLE [Concomitant]
     Active Substance: OMEPRAZOLE
  17. ONDANSETRON [Concomitant]
     Active Substance: ONDANSETRON
  18. POTASSIUM CHLORIDE [Concomitant]
     Active Substance: POTASSIUM CHLORIDE
  19. PROAIR HFA [Concomitant]
     Active Substance: ALBUTEROL SULFATE
  20. SPIRONO/HCTZ [Concomitant]
  21. TRAMADOL HCL [Concomitant]
     Active Substance: TRAMADOL HYDROCHLORIDE
  22. VITAMIN D [Concomitant]
     Active Substance: VITAMIN D NOS

REACTIONS (1)
  - Surgery [None]
